FAERS Safety Report 8268107-9 (Version None)
Quarter: 2012Q2

REPORT INFORMATION
  Report Type: 
  Country: None (occurrence: None)
  Receive Date: 20120409
  Receipt Date: 20120402
  Transmission Date: 20120825
  Serious: Yes (Death, Hospitalization)
  Sender: FDA-Public Use
  Company Number: FR-ELI_LILLY_AND_COMPANY-FR201204000150

PATIENT
  Age: 75 Year
  Sex: Male

DRUGS (3)
  1. CARBOPLATIN [Concomitant]
     Dosage: UNK, UNKNOWN
  2. ALIMTA [Suspect]
     Dosage: 500 MG, UNKNOWN
     Dates: start: 20080101, end: 20080101
  3. DOCETAXEL [Concomitant]
     Dosage: UNK, UNKNOWN

REACTIONS (3)
  - DEATH [None]
  - SEPTIC SHOCK [None]
  - ECZEMA ASTEATOTIC [None]
